FAERS Safety Report 8913089 (Version 1)
Quarter: 2012Q4

REPORT INFORMATION
  Report Type: 
  Country: US (occurrence: US)
  Receive Date: 20121116
  Receipt Date: 20121116
  Transmission Date: 20130627
  Serious: Yes (Death, Hospitalization, Other)
  Sender: FDA-Public Use
  Company Number: US-PFIZER INC-2012283831

PATIENT
  Age: 80 Year
  Sex: Male

DRUGS (1)
  1. REVATIO [Suspect]
     Indication: HEART DISORDER
     Dosage: 20 mg, 3x/day
     Dates: start: 20090210

REACTIONS (4)
  - Renal disorder [Fatal]
  - Lung disorder [Fatal]
  - Hernia [Unknown]
  - Off label use [Unknown]
